FAERS Safety Report 24254364 (Version 1)
Quarter: 2024Q3

REPORT INFORMATION
  Report Type: Spontaneous
  Country: FR (occurrence: FR)
  Receive Date: 20240827
  Receipt Date: 20240827
  Transmission Date: 20241016
  Serious: Yes (Hospitalization, Other)
  Sender: SANOFI AVENTIS
  Company Number: FR-SA-2024SA246530

PATIENT
  Age: 42 Year
  Sex: Female

DRUGS (4)
  1. THIAMPHENICOL [Suspect]
     Active Substance: THIAMPHENICOL
     Indication: Staphylococcal infection
     Dosage: UNK
  2. THIAMPHENICOL [Suspect]
     Active Substance: THIAMPHENICOL
     Indication: Cutibacterium acnes infection
  3. RIFAMPIN [Suspect]
     Active Substance: RIFAMPIN
     Indication: Cutibacterium acnes infection
     Dosage: UNK
  4. RIFAMPIN [Suspect]
     Active Substance: RIFAMPIN
     Indication: Staphylococcal infection

REACTIONS (8)
  - Multiple organ dysfunction syndrome [Unknown]
  - Metabolic acidosis [Recovered/Resolved]
  - Vomiting [Recovered/Resolved]
  - Abdominal pain [Recovered/Resolved]
  - Abdominal distension [Recovered/Resolved]
  - Hyperlactacidaemia [Recovered/Resolved]
  - Shock [Unknown]
  - Delirium [Unknown]
